FAERS Safety Report 7554220-8 (Version None)
Quarter: 2011Q2

REPORT INFORMATION
  Report Type: 
  Country: None (occurrence: None)
  Receive Date: 20110617
  Receipt Date: 20110614
  Transmission Date: 20111010
  Serious: No
  Sender: FDA-Public Use
  Company Number: US-PFIZER INC-2011112845

PATIENT

DRUGS (2)
  1. DIFLUCAN [Suspect]
     Dosage: 200 MG, 2X/DAY
     Route: 048
  2. DIFLUCAN [Suspect]
     Indication: LUNG INFECTION
     Dosage: 200 MG, 1X/DAY
     Route: 048

REACTIONS (1)
  - DRUG EFFECT DECREASED [None]
